FAERS Safety Report 12349870 (Version 1)
Quarter: 2016Q2

REPORT INFORMATION
  Report Type: Spontaneous
  Country: US (occurrence: None)
  Receive Date: 20160509
  Receipt Date: 20160509
  Transmission Date: 20160815
  Serious: Yes (Life-Threatening, Disabling, Other)
  Sender: FDA-Public Use
  Company Number: None

PATIENT
  Age: 5 Year
  Sex: Female
  Weight: 17.69 kg

DRUGS (11)
  1. NUROTIN [Concomitant]
  2. SINGULAIR [Concomitant]
     Active Substance: MONTELUKAST SODIUM
  3. ZANTAC [Concomitant]
     Active Substance: RANITIDINE HYDROCHLORIDE
  4. BACLOFEN. [Suspect]
     Active Substance: BACLOFEN
     Indication: MUSCULOSKELETAL STIFFNESS
     Dosage: 497 497MG 24HRS INSERTED INTO PUMP
     Dates: start: 20130228
  5. PULMCOURT [Concomitant]
  6. DIAZEPAM. [Concomitant]
     Active Substance: DIAZEPAM
  7. ZYRTEC [Concomitant]
     Active Substance: CETIRIZINE HYDROCHLORIDE
  8. MELATONIN [Concomitant]
     Active Substance: MELATONIN
  9. PROBIOTICS [Concomitant]
     Active Substance: PROBIOTICS NOS
  10. ALBUTEROL. [Concomitant]
     Active Substance: ALBUTEROL
  11. NASONEX [Concomitant]
     Active Substance: MOMETASONE FUROATE

REACTIONS (3)
  - Product selection error [None]
  - Drug administered to patient of inappropriate age [None]
  - Respiratory rate decreased [None]

NARRATIVE: CASE EVENT DATE: 20160502
